FAERS Safety Report 13950952 (Version 1)
Quarter: 2017Q3

REPORT INFORMATION
  Report Type: Spontaneous
  Country: US (occurrence: US)
  Receive Date: 20170908
  Receipt Date: 20170908
  Transmission Date: 20171128
  Serious: Yes (Other)
  Sender: FDA-Public Use
  Company Number: US-PFIZER INC-2017252444

PATIENT
  Age: 65 Year
  Sex: Male
  Weight: 66.22 kg

DRUGS (3)
  1. POTASSIUM CHLORIDE. [Concomitant]
     Active Substance: POTASSIUM CHLORIDE
     Dosage: 20 MEQ, DAILY(10MEQ BY MOUTH TWO PER DAY)
     Route: 048
  2. XELJANZ [Suspect]
     Active Substance: TOFACITINIB CITRATE
     Indication: ARTHRITIS
     Dosage: 5 MG, 2X/DAY
     Route: 048
     Dates: end: 201707
  3. SIMVASTATIN. [Concomitant]
     Active Substance: SIMVASTATIN
     Indication: BLOOD CHOLESTEROL
     Dosage: 40 MG, DAILY(ONE TABLET BY MOUTH PER DAY)
     Route: 048

REACTIONS (4)
  - Drug ineffective [Unknown]
  - Pain [Recovering/Resolving]
  - Pulmonary oedema [Not Recovered/Not Resolved]
  - Bronchitis [Not Recovered/Not Resolved]
